FAERS Safety Report 9721455 (Version 4)
Quarter: 2016Q2

REPORT INFORMATION
  Report Type: Report from Study
  Country: JP (occurrence: JP)
  Receive Date: 20131129
  Receipt Date: 20160418
  Transmission Date: 20160815
  Serious: Yes (Death, Hospitalization, Other)
  Sender: FDA-Public Use
  Company Number: JP-TAKEDA-2013TUS002691

PATIENT
  Age: 40 Year
  Sex: Male
  Weight: 123.2 kg

DRUGS (47)
  1. FEBUXOSTAT. [Suspect]
     Active Substance: FEBUXOSTAT
     Dosage: 20 MG, QD
     Route: 048
     Dates: start: 20140905, end: 20140911
  2. WARFARIN                           /00014803/ [Concomitant]
     Active Substance: WARFARIN
     Dosage: 2.5 MG, QD
     Route: 048
     Dates: start: 20130213, end: 20130312
  3. MYSLEE [Concomitant]
     Active Substance: ZOLPIDEM TARTRATE
     Indication: INSOMNIA
     Dosage: 10 MG, UNK
     Route: 048
     Dates: start: 20130509, end: 20141215
  4. BEZAFIBRATE [Concomitant]
     Active Substance: BEZAFIBRATE
     Indication: HYPERLIPIDAEMIA
     Dosage: 200 MG, BID
     Route: 048
     Dates: end: 20131127
  5. LASIX [Concomitant]
     Active Substance: FUROSEMIDE
     Dosage: 20 MG, QD
     Route: 041
     Dates: start: 20150414, end: 20150414
  6. LUNESTA [Concomitant]
     Active Substance: ESZOPICLONE
     Indication: INSOMNIA
     Dosage: 2 MG, QD
     Route: 048
     Dates: start: 20141216, end: 20150523
  7. ARTIST [Concomitant]
     Active Substance: CARVEDILOL
     Dosage: 10 MG, BID
     Route: 048
     Dates: start: 20130213, end: 20150523
  8. GOODMIN [Concomitant]
     Active Substance: BROTIZOLAM
     Indication: INSOMNIA
     Dosage: 0.25 MG, UNK
     Route: 048
     Dates: end: 20130508
  9. WARFARIN                           /00014803/ [Concomitant]
     Active Substance: WARFARIN
     Dosage: 2 MG, QD
     Route: 048
     Dates: start: 20140220, end: 20140828
  10. WARFARIN                           /00014803/ [Concomitant]
     Active Substance: WARFARIN
     Dosage: 1.5 MG, QD
     Route: 048
     Dates: start: 20150226, end: 20150520
  11. SELARA [Concomitant]
     Active Substance: EPLERENONE
     Dosage: 25 MG, QD
     Route: 048
     Dates: start: 20131226, end: 20150523
  12. HANP [Concomitant]
     Active Substance: CARPERITIDE
     Dosage: 3000 ?G, BID
     Route: 041
     Dates: start: 20150311, end: 20150316
  13. WARFARIN                           /00014803/ [Concomitant]
     Active Substance: WARFARIN
     Dosage: 1.5 MG, QD
     Route: 048
     Dates: start: 20141215, end: 20150128
  14. WARFARIN                           /00014803/ [Concomitant]
     Active Substance: WARFARIN
     Dosage: 1.75 MG, QD
     Route: 048
     Dates: start: 20150129, end: 20150225
  15. AZILVA [Concomitant]
     Active Substance: AZILSARTAN KAMEDOXOMIL
     Indication: HYPERTENSION
     Dosage: 40 MG, QD
     Route: 048
     Dates: start: 20140828, end: 20141215
  16. LIVALO [Concomitant]
     Active Substance: PITAVASTATIN CALCIUM
     Indication: HYPERLIPIDAEMIA
     Dosage: 2 MG, QD
     Route: 048
     Dates: start: 20131128, end: 20150523
  17. CARVEDILOL. [Concomitant]
     Active Substance: CARVEDILOL
     Indication: HYPERTENSION
     Dosage: UNK, TID
     Route: 048
     Dates: start: 20141215, end: 20141228
  18. AMIODARONE HYDROCHLORIDE. [Concomitant]
     Active Substance: AMIODARONE HYDROCHLORIDE
     Dosage: 100 MG, QD
     Route: 048
     Dates: start: 20150226, end: 20150523
  19. WARFARIN                           /00014803/ [Concomitant]
     Active Substance: WARFARIN
     Dosage: 1.5 MG, QD
     Route: 048
     Dates: start: 20130919, end: 20140122
  20. WARFARIN                           /00014803/ [Concomitant]
     Active Substance: WARFARIN
     Dosage: 1.5 MG, QD
     Route: 048
     Dates: start: 20140925, end: 20141022
  21. SAMSCA [Concomitant]
     Active Substance: TOLVAPTAN
     Indication: HYPERTENSION
     Dosage: 7.5 MG, QD
     Route: 048
     Dates: start: 20140828, end: 20140831
  22. ARTIST [Concomitant]
     Active Substance: CARVEDILOL
     Dosage: 10 MG, QD
     Route: 048
     Dates: start: 20121205, end: 20130212
  23. DIOVAN [Concomitant]
     Active Substance: VALSARTAN
     Indication: HYPERTENSION
     Dosage: 80 MG, QD
     Route: 048
     Dates: end: 20140827
  24. NORVASC [Concomitant]
     Active Substance: AMLODIPINE BESYLATE
     Indication: HYPERTENSION
     Dosage: 5 MG, QD
     Route: 048
     Dates: end: 20141215
  25. LASIX [Concomitant]
     Active Substance: FUROSEMIDE
     Indication: CARDIAC FAILURE
     Dosage: 20 MG, QD
     Route: 041
     Dates: start: 20140502, end: 20140502
  26. LASIX [Concomitant]
     Active Substance: FUROSEMIDE
     Dosage: 20 MG, QD
     Route: 041
     Dates: start: 20150310, end: 20150310
  27. NEOPHYLLIN                         /00003701/ [Concomitant]
     Dosage: 250 MG, QD
     Route: 041
     Dates: start: 20141203, end: 20141207
  28. FEBUXOSTAT. [Suspect]
     Active Substance: FEBUXOSTAT
     Indication: HYPERURICAEMIA
     Dosage: 10 MG, QD
     Route: 048
     Dates: start: 20121005, end: 20140904
  29. DIART [Concomitant]
     Active Substance: AZOSEMIDE
     Indication: CARDIAC FAILURE
     Dosage: 60 MG, QD
     Route: 048
     Dates: end: 20141216
  30. WARFARIN                           /00014803/ [Concomitant]
     Active Substance: WARFARIN
     Dosage: 2 MG, QD
     Route: 048
     Dates: start: 20130313, end: 20130918
  31. WARFARIN                           /00014803/ [Concomitant]
     Active Substance: WARFARIN
     Dosage: 1.25 MG, QD
     Route: 048
     Dates: start: 20140829, end: 20140924
  32. WARFARIN                           /00014803/ [Concomitant]
     Active Substance: WARFARIN
     Dosage: 2 MG, QD
     Route: 048
     Dates: start: 20141023, end: 20141214
  33. WARFARIN                           /00014803/ [Concomitant]
     Active Substance: WARFARIN
     Dosage: 1 MG, BID
     Route: 048
     Dates: start: 20150521, end: 20150523
  34. LASIX [Concomitant]
     Active Substance: FUROSEMIDE
     Dosage: 20 MG, QD
     Route: 041
     Dates: start: 20141202, end: 20141202
  35. TAMIFLU [Concomitant]
     Active Substance: OSELTAMIVIR PHOSPHATE
     Indication: INFECTION PROPHYLAXIS
     Dosage: 75 MG, QD
     Route: 048
     Dates: start: 20150313, end: 20150322
  36. FEBUXOSTAT. [Suspect]
     Active Substance: FEBUXOSTAT
     Dosage: 40 MG, QD
     Route: 048
     Dates: start: 20140912, end: 20150523
  37. ARTIST [Concomitant]
     Active Substance: CARVEDILOL
     Indication: HYPERTENSION
     Dosage: 2.5 MG, TID
     Route: 048
     Dates: end: 20121204
  38. AMIODARONE HYDROCHLORIDE. [Concomitant]
     Active Substance: AMIODARONE HYDROCHLORIDE
     Indication: ATRIAL FIBRILLATION
     Dosage: 100 MG, BID
     Route: 048
     Dates: start: 20121005, end: 20150223
  39. AMIODARONE HYDROCHLORIDE. [Concomitant]
     Active Substance: AMIODARONE HYDROCHLORIDE
     Dosage: 50 MG, QD
     Route: 048
     Dates: start: 20150226, end: 20150523
  40. WARFARIN                           /00014803/ [Concomitant]
     Active Substance: WARFARIN
     Indication: ATRIAL FIBRILLATION
     Dosage: 2 MG, QD
     Route: 048
     Dates: end: 20130212
  41. NEOPHYLLIN                         /00003701/ [Concomitant]
     Indication: CARDIAC FAILURE
     Dosage: 250 MG, QD
     Route: 041
     Dates: start: 20150311, end: 20150316
  42. HANP [Concomitant]
     Active Substance: CARPERITIDE
     Indication: CARDIAC FAILURE
     Dosage: 3000 ?G, BID
     Route: 041
     Dates: start: 20141203, end: 20141208
  43. CARVEDILOL. [Concomitant]
     Active Substance: CARVEDILOL
     Dosage: UNK, TID
     Route: 048
     Dates: start: 20150324, end: 20150330
  44. DIART [Concomitant]
     Active Substance: AZOSEMIDE
     Dosage: 60 MG, BID
     Route: 048
     Dates: start: 20141217, end: 20150523
  45. WARFARIN                           /00014803/ [Concomitant]
     Active Substance: WARFARIN
     Dosage: 1.75 MG, QD
     Route: 048
     Dates: start: 20140123, end: 20140219
  46. SELARA [Concomitant]
     Active Substance: EPLERENONE
     Indication: HYPERTENSION
     Dosage: 50 MG, QD
     Route: 048
     Dates: start: 20130410, end: 20131225
  47. ZOSYN [Concomitant]
     Active Substance: PIPERACILLIN SODIUM\TAZOBACTAM SODIUM
     Indication: PNEUMONIA
     Dosage: 4.5 G, TID
     Route: 041
     Dates: start: 20140502, end: 20140509

REACTIONS (7)
  - Acute abdomen [Fatal]
  - Cardiac failure [Recovering/Resolving]
  - Cardiac failure [Recovering/Resolving]
  - Cardiac failure [Recovering/Resolving]
  - Cardiac failure [Recovering/Resolving]
  - Cardiac failure [Recovering/Resolving]
  - Pneumonia [Recovering/Resolving]

NARRATIVE: CASE EVENT DATE: 20130110
